FAERS Safety Report 5883278-7 (Version None)
Quarter: 2008Q3

REPORT INFORMATION
  Report Type: 
  Country: None (occurrence: None)
  Receive Date: 20080915
  Receipt Date: 20080910
  Transmission Date: 20090109
  Serious: Yes (Hospitalization)
  Sender: FDA-Public Use
  Company Number: FR-BRISTOL-MYERS SQUIBB COMPANY-13820527

PATIENT
  Age: 48 Year
  Sex: Female

DRUGS (3)
  1. REYATAZ [Suspect]
     Indication: HIV INFECTION
     Dosage: STOPPED ON 10-MAY-07-REINTRODUCED ON 07-JUN-07; ON 13-JUN-07 DOSAGE DECREASED FROM 450MG TO400MG/D.
     Route: 048
     Dates: start: 20060706, end: 20080312
  2. ZIAGEN [Suspect]
     Dosage: THERAPY STOPPED ON 10-MAY-2007 AND REINTRODUCED ON 07-JUN-2007.
     Dates: start: 20060505, end: 20080312
  3. VIREAD [Suspect]
     Dosage: THERAPY STOPPED ON 10-MAY-2007 AND REINTRODUCED ON 07-JUN-2007.
     Dates: start: 20060530, end: 20080312

REACTIONS (1)
  - HEPATITIS [None]
